FAERS Safety Report 8789721 (Version 2)
Quarter: 2012Q4

REPORT INFORMATION
  Report Type: Spontaneous
  Country: US (occurrence: None)
  Receive Date: 20120905
  Receipt Date: 20121015
  Transmission Date: 20130627
  Serious: Yes (Hospitalization, Other)
  Sender: FDA-Public Use
  Company Number: 2012-003142

PATIENT
  Age: 20 Year
  Sex: Male
  Weight: 63.5 kg

DRUGS (2)
  1. ASACOL HD [Suspect]
     Indication: COLITIS
     Route: 048
     Dates: start: 20120828
  2. ASACOL HD [Suspect]
     Indication: CROHN^S DISEASE
     Route: 048
     Dates: start: 20120828

REACTIONS (3)
  - Pneumothorax [None]
  - Chest pain [None]
  - Dyspnoea [None]
